FAERS Safety Report 20574047 (Version 1)
Quarter: 2022Q1

REPORT INFORMATION
  Report Type: Spontaneous
  Country: US (occurrence: US)
  Receive Date: 20220309
  Receipt Date: 20220309
  Transmission Date: 20220423
  Serious: Yes (Other)
  Sender: FDA-Public Use
  Company Number: US-JOURNEY MEDICAL CORPORATION-2022JNY00618

PATIENT
  Age: 17 Year
  Sex: Male

DRUGS (1)
  1. QBREXZA [Suspect]
     Active Substance: GLYCOPYRRONIUM TOSYLATE
     Indication: Hyperhidrosis
     Dosage: UNK
     Route: 061

REACTIONS (4)
  - Urinary retention [Unknown]
  - Vision blurred [Unknown]
  - Oropharyngeal pain [Unknown]
  - Mydriasis [Unknown]
